FAERS Safety Report 14732598 (Version 1)
Quarter: 2018Q2

REPORT INFORMATION
  Report Type: Spontaneous
  Country: CA (occurrence: CA)
  Receive Date: 20180409
  Receipt Date: 20180409
  Transmission Date: 20180711
  Serious: Yes (Other)
  Sender: FDA-Public Use
  Company Number: CA-ROCHE-2099768

PATIENT
  Sex: Female

DRUGS (14)
  1. CITALOPRAM [Concomitant]
     Active Substance: CITALOPRAM HYDROBROMIDE
  2. CODEINE [Concomitant]
     Active Substance: CODEINE
     Route: 065
  3. PANTOLOC [Concomitant]
     Active Substance: PANTOPRAZOLE SODIUM
  4. SULFASALAZINE. [Concomitant]
     Active Substance: SULFASALAZINE
  5. RITUXAN [Suspect]
     Active Substance: RITUXIMAB
     Indication: ARTHRITIS REACTIVE
     Route: 042
     Dates: start: 2013
  6. PREDNISONE. [Concomitant]
     Active Substance: PREDNISONE
  7. TRAMACET [Concomitant]
     Active Substance: ACETAMINOPHEN\TRAMADOL
  8. ORENCIA [Concomitant]
     Active Substance: ABATACEPT
  9. DESYREL [Concomitant]
     Active Substance: TRAZODONE HYDROCHLORIDE
  10. HYDROXYCHLOROQUINE [Concomitant]
     Active Substance: HYDROXYCHLOROQUINE
  11. RITUXAN [Suspect]
     Active Substance: RITUXIMAB
     Indication: ENCEPHALITIS AUTOIMMUNE
  12. LYRICA [Concomitant]
     Active Substance: PREGABALIN
  13. OMEGA 3 [Concomitant]
     Active Substance: OMEGA-3 FATTY ACIDS
  14. SYNTHROID [Concomitant]
     Active Substance: LEVOTHYROXINE SODIUM

REACTIONS (6)
  - Loss of personal independence in daily activities [Unknown]
  - Neurological symptom [Unknown]
  - Hypogammaglobulinaemia [Unknown]
  - Arthralgia [Unknown]
  - Encephalitis autoimmune [Unknown]
  - Neurosensory hypoacusis [Unknown]

NARRATIVE: CASE EVENT DATE: 2017
